FAERS Safety Report 5580175-1 (Version None)
Quarter: 2007Q4

REPORT INFORMATION
  Report Type: 
  Country: None (occurrence: None)
  Receive Date: 20071227
  Receipt Date: 20071217
  Transmission Date: 20080405
  Serious: Yes (Other)
  Sender: FDA-Public Use
  Company Number: CHNY2007DE04066

PATIENT
  Age: 66 Year
  Sex: Male

DRUGS (1)
  1. OTRIVIN [Suspect]
     Indication: RHINITIS
     Dosage: 40 INSTILLATIONS A DAY, NASAL
     Route: 045

REACTIONS (10)
  - ARRHYTHMIA [None]
  - DIABETES MELLITUS [None]
  - GLAUCOMA [None]
  - HEART RATE ABNORMAL [None]
  - INTENTIONAL DRUG MISUSE [None]
  - MACULAR DEGENERATION [None]
  - OVERDOSE [None]
  - PALPITATIONS [None]
  - PROSTATIC DISORDER [None]
  - RETINAL OEDEMA [None]
